FAERS Safety Report 9835077 (Version 1)
Quarter: 2014Q1

REPORT INFORMATION
  Report Type: Spontaneous
  Country: CA (occurrence: CA)
  Receive Date: 20140122
  Receipt Date: 20140122
  Transmission Date: 20141002
  Serious: Yes (Other)
  Sender: FDA-Public Use
  Company Number: CA-BAXTER-2014BAX001941

PATIENT
  Age: 81 Year
  Sex: Male

DRUGS (9)
  1. DIANEAL PD 101 SOLUTION WITH 0.5% DEXTROSE [Suspect]
     Indication: PERITONEAL DIALYSIS
     Route: 033
     Dates: start: 20131112
  2. DIANEAL PD 101 SOLUTION WITH 0.5% DEXTROSE [Suspect]
     Route: 033
  3. NUTRINEAL PD4 1.1% AMINO ACID PERITONEAL DIALYSIS SOLUTION [Suspect]
     Indication: PERITONEAL DIALYSIS
     Route: 033
     Dates: start: 20131112
  4. BISOPROLOL [Concomitant]
     Indication: ARRHYTHMIA
     Route: 048
  5. ALLOPURINOL [Concomitant]
     Indication: GOUT
     Route: 048
  6. TUMS [Concomitant]
     Indication: PRODUCT USED FOR UNKNOWN INDICATION
     Route: 048
  7. TAMSULOSIN [Concomitant]
     Indication: HYPERTENSION
     Route: 048
  8. AVODART [Concomitant]
     Indication: PRODUCT USED FOR UNKNOWN INDICATION
  9. SYNTHROID [Concomitant]
     Indication: PRODUCT USED FOR UNKNOWN INDICATION
     Route: 048

REACTIONS (2)
  - Cough [Not Recovered/Not Resolved]
  - Breath sounds abnormal [Not Recovered/Not Resolved]
